FAERS Safety Report 16927536 (Version 10)
Quarter: 2021Q2

REPORT INFORMATION
  Report Type: Report from Study
  Country: US (occurrence: US)
  Receive Date: 20191016
  Receipt Date: 20210517
  Transmission Date: 20210716
  Serious: Yes (Hospitalization, Other)
  Sender: FDA-Public Use
  Company Number: NVSC2019US002587

PATIENT
  Age: 61 Year
  Sex: Female
  Weight: 97.05 kg

DRUGS (7)
  1. TREPROSTINIL. [Suspect]
     Active Substance: TREPROSTINIL
     Dosage: 1 DF (50 (NG/KG/MIN) CONTINUOUS)
     Route: 042
     Dates: start: 20190812
  2. TREPROSTINIL. [Suspect]
     Active Substance: TREPROSTINIL
     Dosage: 1 DF (50 (NG/KG/MIN) CONTINUOUS)
     Route: 042
     Dates: start: 20190812
  3. TREPROSTINIL. [Suspect]
     Active Substance: TREPROSTINIL
     Dosage: UNK (50 NG/KG/MIN) CONTI
     Route: 065
     Dates: start: 20190812
  4. TREPROSTINIL. [Suspect]
     Active Substance: TREPROSTINIL
     Dosage: 1 DF (50 (NG/KG/MIN) CONTINUOUS)
     Route: 042
     Dates: start: 20190812
  5. SILDENAFIL CITRATE. [Concomitant]
     Active Substance: SILDENAFIL CITRATE
     Indication: PRODUCT USED FOR UNKNOWN INDICATION
     Dosage: UNK
     Route: 065
  6. TREPROSTINIL. [Suspect]
     Active Substance: TREPROSTINIL
     Indication: PULMONARY ARTERIAL HYPERTENSION
     Dosage: 50 NG/KG/MIN, CONT
     Route: 042
     Dates: start: 20190812
  7. OPSUMIT [Concomitant]
     Active Substance: MACITENTAN
     Indication: PRODUCT USED FOR UNKNOWN INDICATION
     Dosage: UNK
     Route: 065

REACTIONS (8)
  - Infection [Unknown]
  - Rectal cancer stage III [Unknown]
  - Dizziness [Unknown]
  - Incorrect drug administration rate [Unknown]
  - Dehydration [Unknown]
  - Lymphadenopathy [Unknown]
  - Sepsis [Unknown]
  - Cardiac disorder [Unknown]

NARRATIVE: CASE EVENT DATE: 20201223
